FAERS Safety Report 14922960 (Version 2)
Quarter: 2018Q2

REPORT INFORMATION
  Report Type: Spontaneous
  Country: DE (occurrence: DE)
  Receive Date: 20180522
  Receipt Date: 20180529
  Transmission Date: 20180711
  Serious: Yes (Hospitalization, Other)
  Sender: FDA-Public Use
  Company Number: PHHY2018DE001425

PATIENT
  Age: 51 Year
  Sex: Female

DRUGS (3)
  1. FLUPIRTINE [Suspect]
     Active Substance: FLUPIRTINE
     Indication: BACK PAIN
     Dosage: 400 [UNIT NOT STATED]
     Route: 065
  2. FLUPIRTINE [Suspect]
     Active Substance: FLUPIRTINE
     Indication: MUSCULOSKELETAL DISORDER
  3. METOPROLOL. [Suspect]
     Active Substance: METOPROLOL
     Indication: PRODUCT USED FOR UNKNOWN INDICATION
     Dosage: UNK
     Route: 065

REACTIONS (2)
  - Hepatic encephalopathy [Recovered/Resolved]
  - Drug-induced liver injury [Recovered/Resolved]
